FAERS Safety Report 4781319-1 (Version None)
Quarter: 2005Q3

REPORT INFORMATION
  Report Type: 
  Country: None (occurrence: None)
  Receive Date: 20050914
  Receipt Date: 20050614
  Transmission Date: 20060218
  Serious: No
  Sender: FDA-Public Use
  Company Number: IND-AE-05-SAN-034

PATIENT
  Age: 72 Year
  Sex: Male
  Weight: 104.3273 kg

DRUGS (4)
  1. SANCTURA [Suspect]
     Indication: HYPERTONIC BLADDER
     Dosage: 20MG QD; ORAL
     Route: 048
     Dates: start: 20050422, end: 20050422
  2. SANCTURA [Suspect]
     Indication: HYPERTONIC BLADDER
     Dosage: 40MG QD; ORAL
     Route: 048
     Dates: start: 20050423, end: 20050423
  3. VERAPAMIL [Concomitant]
  4. HYDROCHLOROTHIAZIDE [Concomitant]

REACTIONS (4)
  - CHEST DISCOMFORT [None]
  - DIZZINESS [None]
  - NAUSEA [None]
  - VOMITING [None]
